FAERS Safety Report 17495481 (Version 2)
Quarter: 2020Q1

REPORT INFORMATION
  Report Type: Spontaneous
  Country: US (occurrence: US)
  Receive Date: 20200303
  Receipt Date: 20200331
  Transmission Date: 20200409
  Serious: Yes (Other)
  Sender: FDA-Public Use
  Company Number: NVSC2020US058316

PATIENT
  Age: 80 Year

DRUGS (1)
  1. BEOVU [Suspect]
     Active Substance: BROLUCIZUMAB-DBLL
     Indication: NEOVASCULAR AGE-RELATED MACULAR DEGENERATION
     Dosage: 6 MG, QD
     Route: 047
     Dates: start: 20200124, end: 20200124

REACTIONS (4)
  - Uveitis [Recovering/Resolving]
  - Vision blurred [Recovering/Resolving]
  - Vitreous floaters [Recovering/Resolving]
  - Vitreous opacities [Recovering/Resolving]

NARRATIVE: CASE EVENT DATE: 20200207
